FAERS Safety Report 15243611 (Version 1)
Quarter: 2018Q3

REPORT INFORMATION
  Report Type: Spontaneous
  Country: US (occurrence: US)
  Receive Date: 20180806
  Receipt Date: 20180806
  Transmission Date: 20181010
  Serious: Yes (Life-Threatening, Other)
  Sender: FDA-Public Use
  Company Number: US-MIST-TIR-2018-0792

PATIENT
  Sex: Female

DRUGS (2)
  1. LEVOTHYROXINE. [Suspect]
     Active Substance: LEVOTHYROXINE
     Indication: HYPOTHYROIDISM
  2. LEVOTHYROXINE. [Suspect]
     Active Substance: LEVOTHYROXINE
     Indication: AUTOIMMUNE THYROIDITIS

REACTIONS (14)
  - Hyperplasia [Unknown]
  - Weight increased [Unknown]
  - Suicidal ideation [Unknown]
  - Hypopituitarism [Unknown]
  - Polyuria [Unknown]
  - Headache [Unknown]
  - Tri-iodothyronine free decreased [Unknown]
  - Vision blurred [Unknown]
  - Galactorrhoea [Unknown]
  - Visual field defect [Unknown]
  - Secondary adrenocortical insufficiency [Unknown]
  - Diabetes insipidus [Unknown]
  - Thyroxine free decreased [Unknown]
  - Blood thyroid stimulating hormone increased [Recovered/Resolved]
